FAERS Safety Report 10505292 (Version 1)
Quarter: 2014Q3

REPORT INFORMATION
  Report Type: Spontaneous
  Country: US (occurrence: None)
  Receive Date: 20140915
  Receipt Date: 20140915
  Transmission Date: 20150326
  Serious: Yes (Other)
  Sender: FDA-Public Use
  Company Number: 2012SGN00081

PATIENT
  Sex: Female

DRUGS (1)
  1. ADCETRIS [Suspect]
     Active Substance: BRENTUXIMAB VEDOTIN
     Indication: PRODUCT USED FOR UNKNOWN INDICATION
     Dates: start: 20111012

REACTIONS (7)
  - Retching [None]
  - Dyspnoea [None]
  - Eye swelling [None]
  - Swelling face [None]
  - Cough [None]
  - Pruritus [None]
  - Pharyngeal oedema [None]
